FAERS Safety Report 12304630 (Version 1)
Quarter: 2016Q2

REPORT INFORMATION
  Report Type: Report from Study
  Country: DE (occurrence: DE)
  Receive Date: 20160426
  Receipt Date: 20160426
  Transmission Date: 20160815
  Serious: Yes (Hospitalization)
  Sender: FDA-Public Use
  Company Number: PHHO2016DE005857

PATIENT
  Age: 42 Year
  Sex: Female

DRUGS (9)
  1. CYTARABINE. [Suspect]
     Active Substance: CYTARABINE
     Indication: HODGKIN^S DISEASE
     Dosage: 2000 MG/M2,
     Route: 065
     Dates: start: 20160406, end: 20160406
  2. CISPLATIN. [Suspect]
     Active Substance: CISPLATIN
     Indication: HODGKIN^S DISEASE
     Dosage: 100 MG/M2
     Route: 065
     Dates: start: 20160405, end: 20160405
  3. BLINDED PLACEBO [Suspect]
     Active Substance: INVESTIGATIONAL PRODUCT
     Indication: HODGKIN^S DISEASE
     Dosage: CODE NOT BROKEN
     Route: 048
     Dates: start: 20160404, end: 20160412
  4. LORAZEPAM. [Concomitant]
     Active Substance: LORAZEPAM
     Indication: PRODUCT USED FOR UNKNOWN INDICATION
     Dosage: 2 MG/1 MG
     Route: 065
     Dates: start: 20160405
  5. AFINITOR [Suspect]
     Active Substance: EVEROLIMUS
     Indication: HODGKIN^S DISEASE
     Dosage: CODE NOT BROKEN
     Route: 048
     Dates: start: 20160404, end: 20160412
  6. DEXAMETHASONE. [Suspect]
     Active Substance: DEXAMETHASONE
     Indication: HODGKIN^S DISEASE
     Dosage: 40 MG, ABS
     Route: 065
     Dates: start: 20160405, end: 20160408
  7. BLINDED NO TREATMENT RECEIVED [Suspect]
     Active Substance: INVESTIGATIONAL PRODUCT
     Indication: HODGKIN^S DISEASE
     Dosage: CODE NOT BROKEN
     Route: 048
     Dates: start: 20160404, end: 20160412
  8. ONDANSETRON [Concomitant]
     Active Substance: ONDANSETRON
     Indication: PRODUCT USED FOR UNKNOWN INDICATION
     Dosage: 16 MG, UNK
     Route: 065
     Dates: start: 20160405
  9. APREPITANT. [Concomitant]
     Active Substance: APREPITANT
     Indication: PRODUCT USED FOR UNKNOWN INDICATION
     Dosage: 125 MG/80 MG, QD
     Route: 065
     Dates: start: 20160405

REACTIONS (2)
  - Febrile neutropenia [Recovered/Resolved]
  - Nausea [Recovered/Resolved]

NARRATIVE: CASE EVENT DATE: 20160416
